FAERS Safety Report 6107624-4 (Version None)
Quarter: 2009Q1

REPORT INFORMATION
  Report Type: 
  Country: None (occurrence: None)
  Receive Date: 20090309
  Receipt Date: 20090112
  Transmission Date: 20090719
  Serious: Yes (Death, Hospitalization)
  Sender: FDA-Public Use
  Company Number: DE-PFIZER INC-2008072282

PATIENT

DRUGS (8)
  1. IRINOTECAN HCL [Suspect]
     Indication: COLORECTAL CANCER METASTATIC
     Dosage: 1 EVERY 2 WEEKS
     Route: 042
     Dates: start: 20080515
  2. BLINDED *PLACEBO [Suspect]
     Indication: COLORECTAL CANCER METASTATIC
     Route: 048
     Dates: start: 20080515
  3. BLINDED SUNITINIB MALATE [Suspect]
     Indication: COLORECTAL CANCER METASTATIC
     Route: 048
     Dates: start: 20080515
  4. FLUOROURACIL [Suspect]
     Indication: COLORECTAL CANCER METASTATIC
     Dosage: BOLUS DAY1 EVERY 2 WEEKS
     Route: 040
     Dates: start: 20080515
  5. FLUOROURACIL [Suspect]
     Dosage: OD EVERY 2 WEEKS
     Route: 042
     Dates: start: 20080515
  6. CALCIUM FOLINATE [Suspect]
     Indication: COLORECTAL CANCER METASTATIC
     Dosage: 1 EVERY 2 WEEKS
     Route: 042
     Dates: start: 20080515
  7. GRANISETRON [Concomitant]
     Route: 048
     Dates: start: 20080515
  8. ATROPIN [Concomitant]
     Route: 048
     Dates: start: 20080515

REACTIONS (1)
  - PULMONARY EMBOLISM [None]
